FAERS Safety Report 7304007-6 (Version None)
Quarter: 2011Q1

REPORT INFORMATION
  Report Type: 
  Country: None (occurrence: None)
  Receive Date: 20110221
  Receipt Date: 20110214
  Transmission Date: 20110831
  Serious: Yes (Hospitalization, Other)
  Sender: FDA-Public Use
  Company Number: JP-MERCK-1009USA03044

PATIENT
  Age: 73 Year
  Sex: Male

DRUGS (9)
  1. DECADRON PHOSPHATE [Concomitant]
     Route: 065
     Dates: start: 20100902, end: 20100902
  2. EMEND [Suspect]
     Route: 048
     Dates: start: 20100903, end: 20100904
  3. RANDA [Suspect]
     Indication: GASTRIC CANCER
     Route: 042
     Dates: start: 20100625, end: 20100729
  4. ALOXI [Suspect]
     Indication: PROPHYLAXIS OF NAUSEA AND VOMITING
     Route: 042
     Dates: start: 20100902, end: 20100902
  5. EMEND [Suspect]
     Indication: PROPHYLAXIS OF NAUSEA AND VOMITING
     Route: 048
     Dates: start: 20100902, end: 20100902
  6. TS-1 [Suspect]
     Indication: GASTRIC CANCER
     Route: 048
     Dates: start: 20100617, end: 20100906
  7. RANDA [Suspect]
     Route: 042
     Dates: start: 20100902, end: 20100902
  8. DECADRON PHOSPHATE [Concomitant]
     Route: 065
     Dates: start: 20100903, end: 20100903
  9. PRIMPERAN TAB [Concomitant]
     Route: 065
     Dates: start: 20100902, end: 20100902

REACTIONS (1)
  - CARDIAC FAILURE CONGESTIVE [None]
